FAERS Safety Report 4634430-X (Version None)
Quarter: 2005Q2

REPORT INFORMATION
  Report Type: 
  Country: None (occurrence: None)
  Receive Date: 20050412
  Receipt Date: 20050404
  Transmission Date: 20051028
  Serious: Yes (Other)
  Sender: FDA-Public Use
  Company Number: 141181USA

PATIENT
  Age: 37 Year
  Sex: Female
  Weight: 125.1928 kg

DRUGS (5)
  1. COPAXONE [Suspect]
     Indication: MULTIPLE SCLEROSIS
     Dosage: 20 MILLIGRAM QD SUBCUTANEOUS
     Route: 058
     Dates: start: 20011201, end: 20041108
  2. PROZAC [Concomitant]
  3. BIRTH CONTROL PILLS [Concomitant]
  4. HYDROCHODONE [Concomitant]
  5. XANAX [Concomitant]

REACTIONS (2)
  - LUNG DISORDER [None]
  - LYMPHOMA [None]
